FAERS Safety Report 10175881 (Version 1)
Quarter: 2014Q2

REPORT INFORMATION
  Report Type: Spontaneous
  Country: US (occurrence: None)
  Receive Date: 20140415
  Receipt Date: 20140415
  Transmission Date: 20141212
  Serious: Yes (Other)
  Sender: FDA-Public Use
  Company Number: ALL1-2013-01895

PATIENT
  Age: 25 Year
  Sex: Male
  Weight: 142.4 kg

DRUGS (1)
  1. LIALDA (MESALAZINE, MESALAMINE) TABLET [Suspect]
     Indication: COLITIS ULCERATIVE
     Route: 048
     Dates: start: 2013, end: 20130216

REACTIONS (1)
  - Myocarditis [None]
